FAERS Safety Report 4545884-1 (Version None)
Quarter: 2005Q1

REPORT INFORMATION
  Report Type: 
  Country: None (occurrence: None)
  Receive Date: 20050103
  Receipt Date: 20041223
  Transmission Date: 20050727
  Serious: Yes (Other)
  Sender: FDA-Public Use
  Company Number: 2004114958

PATIENT
  Age: 20 Year
  Sex: Female
  Weight: 95.2554 kg

DRUGS (3)
  1. DEPO-PROVERA [Suspect]
     Indication: CONTRACEPTION
     Dosage: SEE IMAGE
     Route: 030
     Dates: start: 20040505, end: 20040505
  2. DEPO-PROVERA [Suspect]
     Indication: CONTRACEPTION
     Dosage: SEE IMAGE
     Route: 030
     Dates: start: 20041001, end: 20041001
  3. TOLTERODINE TARTRATE [Concomitant]

REACTIONS (8)
  - BACK PAIN [None]
  - BREAST COSMETIC SURGERY [None]
  - CARDIAC FLUTTER [None]
  - HOT FLUSH [None]
  - MENORRHAGIA [None]
  - MENSTRUAL DISORDER [None]
  - MUSCLE SPASMS [None]
  - NIGHT SWEATS [None]
